FAERS Safety Report 7449471-7 (Version None)
Quarter: 2011Q2

REPORT INFORMATION
  Report Type: 
  Country: None (occurrence: None)
  Receive Date: 20110502
  Receipt Date: 20110418
  Transmission Date: 20111010
  Serious: Yes (Other)
  Sender: FDA-Public Use
  Company Number: GB-BAYER-2011-034506

PATIENT
  Age: 71 Year
  Sex: Male

DRUGS (9)
  1. ACETYLSALICYLIC ACID SRT [Suspect]
  2. NICORANDIL [Concomitant]
  3. PRAVASTATIN [Concomitant]
  4. MOVIPREP [Concomitant]
  5. DILTIAZEM HCL [Concomitant]
  6. VITAMIN B COMPLEX CAP [Concomitant]
  7. PROCTOSEDYL [CINCHOCAINE HYDROCHLORIDE,HYDROCORTISONE] [Concomitant]
  8. OMEPRAZOLE [Suspect]
     Dosage: 20 MG, UNK
     Route: 048
  9. TRAMADOL HCL [Concomitant]

REACTIONS (3)
  - HAEMATEMESIS [None]
  - VOMITING [None]
  - MALAISE [None]
